FAERS Safety Report 14589344 (Version 1)
Quarter: 2018Q1

REPORT INFORMATION
  Report Type: Spontaneous
  Country: US (occurrence: US)
  Receive Date: 20180302
  Receipt Date: 20180302
  Transmission Date: 20180509
  Serious: No
  Sender: FDA-Public Use
  Company Number: US-TEVA-2017-US-836336

PATIENT
  Sex: Female
  Weight: 56.7 kg

DRUGS (3)
  1. ACTONEL [Suspect]
     Active Substance: RISEDRONATE SODIUM
     Indication: OSTEOPOROSIS
     Dates: start: 2016, end: 201608
  2. PREDNISONE. [Concomitant]
     Active Substance: PREDNISONE
     Dosage: 10 MILLIGRAM DAILY;
  3. TRAMADOL. [Concomitant]
     Active Substance: TRAMADOL
     Indication: PAIN
     Dosage: 150 MILLIGRAM DAILY; ABOUT 3-4 YEARS

REACTIONS (3)
  - Arthralgia [Unknown]
  - Drug ineffective [Unknown]
  - Pain in jaw [Unknown]
